FAERS Safety Report 17450131 (Version 1)
Quarter: 2020Q1

REPORT INFORMATION
  Report Type: Spontaneous
  Country: US (occurrence: US)
  Receive Date: 20200224
  Receipt Date: 20200224
  Transmission Date: 20200409
  Serious: No
  Sender: FDA-Public Use
  Company Number: US-BTCP PHARMA-INS201407-000125

PATIENT
  Age: 33 Year
  Sex: Male
  Weight: 90.72 kg

DRUGS (21)
  1. SUBSYS [Suspect]
     Active Substance: FENTANYL
     Route: 060
  2. NUVIGIL [Concomitant]
     Active Substance: ARMODAFINIL
  3. BUTRANS [Concomitant]
     Active Substance: BUPRENORPHINE
  4. CELEBREX [Concomitant]
     Active Substance: CELECOXIB
  5. DULOXETINE. [Concomitant]
     Active Substance: DULOXETINE
     Indication: DEPRESSION
  6. ZOFRAN [Concomitant]
     Active Substance: ONDANSETRON HYDROCHLORIDE
     Indication: NAUSEA
  7. MORPHINE [Concomitant]
     Active Substance: MORPHINE
     Indication: PAIN
  8. VICODIN [Concomitant]
     Active Substance: ACETAMINOPHEN\HYDROCODONE BITARTRATE
     Indication: PAIN
  9. LIDOCAINE GEL [Concomitant]
     Active Substance: LIDOCAINE HYDROCHLORIDE
     Indication: SCRATCH
  10. DILAUDID [Concomitant]
     Active Substance: HYDROMORPHONE HYDROCHLORIDE
     Indication: PAIN
  11. DULOXETINE. [Concomitant]
     Active Substance: DULOXETINE
     Indication: PAIN IN EXTREMITY
  12. NUTROPIN [Concomitant]
     Active Substance: SOMATROPIN
  13. SUBSYS [Suspect]
     Active Substance: FENTANYL
     Indication: TUMOUR PAIN
  14. FLEXERIL [Concomitant]
     Active Substance: CYCLOBENZAPRINE HYDROCHLORIDE
  15. SUBSYS [Suspect]
     Active Substance: FENTANYL
     Route: 060
  16. BUTRANS [Concomitant]
     Active Substance: BUPRENORPHINE
  17. OXYCODONE [Concomitant]
     Active Substance: OXYCODONE
     Indication: PAIN
  18. SUBSYS [Suspect]
     Active Substance: FENTANYL
     Indication: BREAKTHROUGH PAIN
     Route: 060
     Dates: start: 201209
  19. FENTANYL TRANSDERMAL SYSTEM [Concomitant]
     Active Substance: FENTANYL
  20. FLECTOR [Concomitant]
     Active Substance: DICLOFENAC EPOLAMINE
  21. PERCOCET [Concomitant]
     Active Substance: ACETAMINOPHEN\OXYCODONE HYDROCHLORIDE
     Indication: PAIN

REACTIONS (6)
  - Accidental device ingestion [Unknown]
  - Discomfort [Unknown]
  - Product quality issue [Unknown]
  - Scratch [Unknown]
  - Pain [Unknown]
  - Vomiting [Unknown]

NARRATIVE: CASE EVENT DATE: 201506
